FAERS Safety Report 4495926-7 (Version None)
Quarter: 2004Q3

REPORT INFORMATION
  Report Type: 
  Country: None (occurrence: None)
  Receive Date: 20040927
  Receipt Date: 20040524
  Transmission Date: 20050211
  Serious: No
  Sender: FDA-Public Use
  Company Number: USA040568353

PATIENT
  Age: 7 Year
  Sex: Male
  Weight: 24 kg

DRUGS (1)
  1. STRATTERA [Suspect]
     Indication: DISTURBANCE IN ATTENTION
     Dosage: 25 MG
     Dates: start: 20030901

REACTIONS (4)
  - ABNORMAL BEHAVIOUR [None]
  - EUPHORIC MOOD [None]
  - FATIGUE [None]
  - PSYCHOMOTOR HYPERACTIVITY [None]
